FAERS Safety Report 4300105-X (Version None)
Quarter: 2004Q1

REPORT INFORMATION
  Report Type: 
  Country: None (occurrence: None)
  Receive Date: 20040220
  Receipt Date: 20040210
  Transmission Date: 20041129
  Serious: Yes (Death, Hospitalization)
  Sender: FDA-Public Use
  Company Number: ZA-BRISTOL-MYERS SQUIBB COMPANY-12507190

PATIENT
  Age: 49 Year
  Sex: Male

DRUGS (7)
  1. EFAVIRENZ CAPS [Suspect]
     Indication: HIV INFECTION
     Route: 048
     Dates: start: 20031105, end: 20040128
  2. COMBIVIR [Concomitant]
     Dates: start: 20031105, end: 20040128
  3. AUGMENTIN [Concomitant]
     Dates: start: 20040121, end: 20040129
  4. THEOPHYLLINE [Concomitant]
     Dates: start: 20040122, end: 20040129
  5. PAINAMOL [Concomitant]
     Dates: start: 20040121, end: 20040129
  6. LOSEC I.V. [Concomitant]
     Dates: start: 20040121, end: 20040129
  7. MAXOLON [Concomitant]
     Route: 042
     Dates: start: 20040121, end: 20040129

REACTIONS (2)
  - HEPATITIS [None]
  - PNEUMONIA [None]
